FAERS Safety Report 18077694 (Version 1)
Quarter: 2020Q3

REPORT INFORMATION
  Report Type: Spontaneous
  Country: None (occurrence: US)
  Receive Date: 20200727
  Receipt Date: 20200727
  Transmission Date: 20201103
  Serious: No
  Sender: FDA-Public Use
  Company Number: US-FAGRON STERILE SERVICES-2087806

PATIENT

DRUGS (1)
  1. 2000082? TROPICAMIDE 1%/ CYCLOPENTOLATE 1%/ PHENYLEPHRINE 2.5%/ KETORO [Suspect]
     Active Substance: CYCLOPENTOLATE\KETOROLAC\PHENYLEPHRINE\TROPICAMIDE
     Dates: start: 20200715

REACTIONS (1)
  - Drug ineffective [Recovered/Resolved]
